FAERS Safety Report 8779055 (Version 2)
Quarter: 2012Q4

REPORT INFORMATION
  Report Type: 
  Country: JP (occurrence: JP)
  Receive Date: 20120912
  Receipt Date: 20121004
  Transmission Date: 20130627
  Serious: Yes (Other)
  Sender: FDA-Public Use
  Company Number: JP-JNJFOC-20120903270

PATIENT
  Sex: Female

DRUGS (4)
  1. TRAMCET [Suspect]
     Indication: FIBROMYALGIA
     Dosage: one per one day
     Route: 048
     Dates: start: 20120807
  2. TRAMCET [Suspect]
     Indication: PAIN
     Dosage: one per one day
     Route: 048
     Dates: start: 20120807
  3. VOLTAREN [Suspect]
     Indication: INJURY
     Route: 054
     Dates: end: 201206
  4. UNKNOWN MULTIPLE MEDICATION [Concomitant]
     Indication: PRE-EXISTING DISEASE
     Route: 065

REACTIONS (3)
  - Gamma-glutamyltransferase increased [Recovering/Resolving]
  - Collagen disorder [Unknown]
  - Diarrhoea [Unknown]
